FAERS Safety Report 17637471 (Version 4)
Quarter: 2025Q1

REPORT INFORMATION
  Report Type: Spontaneous
  Country: US (occurrence: US)
  Receive Date: 20200407
  Receipt Date: 20250218
  Transmission Date: 20250409
  Serious: Yes (Other)
  Sender: PFIZER
  Company Number: US-PFIZER INC-2020141194

PATIENT
  Age: 70 Year
  Sex: Female
  Weight: 61 kg

DRUGS (2)
  1. ESTRING [Suspect]
     Active Substance: ESTRADIOL
     Indication: Urinary tract infection
     Dosage: 2 MG, EVERY 3 MONTHS
  2. ESTRING [Suspect]
     Active Substance: ESTRADIOL
     Indication: Vaginal infection

REACTIONS (5)
  - Atrial fibrillation [Unknown]
  - Pharyngitis streptococcal [Recovered/Resolved]
  - Vaginal infection [Unknown]
  - Off label use [Unknown]
  - Drug effective for unapproved indication [Unknown]

NARRATIVE: CASE EVENT DATE: 20200201
